FAERS Safety Report 23756164 (Version 1)
Quarter: 2024Q2

REPORT INFORMATION
  Report Type: Spontaneous
  Country: US (occurrence: US)
  Receive Date: 20240418
  Receipt Date: 20240418
  Transmission Date: 20240716
  Serious: Yes (Life-Threatening, Hospitalization, Other)
  Sender: FDA-Public Use
  Company Number: US-BRISTOL-MYERS SQUIBB COMPANY-2024-058220

PATIENT
  Age: 68 Year
  Sex: Female
  Weight: 127.3 kg

DRUGS (32)
  1. ELIQUIS [Suspect]
     Active Substance: APIXABAN
     Dosage: UNK
     Dates: end: 20240202
  2. ROCURONIUM BROMIDE [Suspect]
     Active Substance: ROCURONIUM BROMIDE
     Dosage: UNK
  3. OCALIVA [Suspect]
     Active Substance: OBETICHOLIC ACID
     Indication: Primary biliary cholangitis
     Dosage: 5 MG, 1X/DAY
     Route: 048
     Dates: start: 20230710, end: 202403
  4. ACTIGALL [Concomitant]
     Active Substance: URSODIOL
     Dosage: FREQ:.5 D;
     Route: 048
  5. OMEPRAZOLE [Concomitant]
     Active Substance: OMEPRAZOLE
  6. VITAMINS [Concomitant]
     Active Substance: VITAMINS
  7. MINERALS\VITAMINS [Concomitant]
     Active Substance: MINERALS\VITAMINS
     Dosage: FREQ:.5 D;
     Route: 048
  8. METOPROLOL SUCCINATE [Concomitant]
     Active Substance: METOPROLOL SUCCINATE
  9. LISINOPRIL [Concomitant]
     Active Substance: LISINOPRIL
  10. LIPITOR [Concomitant]
     Active Substance: ATORVASTATIN CALCIUM
  11. CLARITIN [Concomitant]
     Active Substance: LORATADINE
  12. TEARS NATURALE FREE [DEXTRAN] [Concomitant]
     Dosage: 0.1-0.3 PERCENT, PLACE 2 DROPS INTO BOTH EYES EVERY 2 HOURSAS NEEDED FOR UP TO 30 DAYS
     Route: 047
  13. KEFLEX [Concomitant]
     Active Substance: CEPHALEXIN
     Dosage: FREQ:.25 D;
     Route: 048
  14. LANOXIN [Concomitant]
     Active Substance: DIGOXIN
     Dosage: FOR 30 DAYS
     Route: 048
  15. CARDIZEM [Concomitant]
     Active Substance: DILTIAZEM HYDROCHLORIDE
     Dosage: FREQ:.25 D;BEFORE MEALS AND NIGHTLY FOR 30 DAYS
     Route: 048
  16. VIBRAMYCIN [Concomitant]
     Active Substance: DOXYCYCLINE
     Dosage: FREQ:.5 D;FOR 7 DAYS
     Route: 048
  17. DUONEB [Concomitant]
     Active Substance: ALBUTEROL SULFATE\IPRATROPIUM BROMIDE
     Indication: Respiratory distress
     Dosage: 0.5 MG-3 MG (2.5 MG BASE)/3 ML NEBULIZER SOLUTION TAKE 3 MLS BY NEBULIZATION EVERY 2 HOURS AS NEEDED
  18. LACTOBACILLUS ACIDOPHILUS [Concomitant]
     Active Substance: LACTOBACILLUS ACIDOPHILUS
     Dosage: FREQ:.5 D;FOR 30 DAYS
     Route: 048
  19. LIDODERM [Concomitant]
     Active Substance: LIDOCAINE
     Indication: Pain
     Dosage: 5 PERCENT (700 MG/PATCH) PLACE 2 PATCHES ONTO THE SKIN DAILY APPLY PATCH TO MOST PAINFUL AREA, REMOV
     Route: 062
  20. LOPRESSOR [Concomitant]
     Active Substance: METOPROLOL TARTRATE
     Dosage: FREQ:.33 D;FOR 30 DAYS
     Route: 048
  21. XARELTO [Concomitant]
     Active Substance: RIVAROXABAN
     Dosage: WITH DINNER
     Route: 048
  22. PEPCID [Concomitant]
     Active Substance: FAMOTIDINE
     Dosage: AS NEEDED
  23. CENTRUM SILVER [ASCORBIC ACID;BIOTIN;CALCIUM;CALCIUM PANTOTHENATE;CHLO [Concomitant]
     Dosage: 1 DF, 1X/DAY
     Route: 048
  24. ENULOSE [Concomitant]
     Active Substance: LACTULOSE
     Indication: Constipation
     Dosage: 10 GRAM/15 ML SOLUTION TAKE 30 MLS (20 G TOTAL) BY MOUTH NIGHTLY AS NEEDED FOR 2-3 DAYS
     Route: 048
  25. PROTONIX [Concomitant]
     Active Substance: PANTOPRAZOLE SODIUM
     Dosage: 40 MG, 1X/DAY
     Route: 048
  26. PERI-COLACE [DOCUSATE SODIUM;SENNOSIDE A+B] [Concomitant]
     Dosage: FOR 20 DAYS
     Route: 048
  27. NORVASC [Concomitant]
     Active Substance: AMLODIPINE BESYLATE
  28. COREG [Concomitant]
     Active Substance: CARVEDILOL
  29. APRESOLINE HYDROCHLORIDE [Concomitant]
     Active Substance: HYDRALAZINE HYDROCHLORIDE
  30. PRINIVIL [Concomitant]
     Active Substance: LISINOPRIL
  31. MACROBID [Concomitant]
     Active Substance: NITROFURANTOIN\NITROFURANTOIN MONOHYDRATE
     Dosage: NITROFURANTOIN MACROCRYSTAL-MONOHYDRATE
  32. D-MANNOSE [Concomitant]

REACTIONS (32)
  - Acute respiratory failure [Recovering/Resolving]
  - Atrial fibrillation [Recovered/Resolved]
  - Left ventricular failure [Recovering/Resolving]
  - Pneumonia [Recovered/Resolved]
  - Cardiogenic shock [Recovered/Resolved]
  - Acute pulmonary oedema [Recovered/Resolved]
  - Essential hypertension [Unknown]
  - Cellulitis [Recovered/Resolved]
  - Respiratory arrest [Recovering/Resolving]
  - Hydronephrosis [Unknown]
  - Pulmonary congestion [Recovering/Resolving]
  - Anaphylactic reaction [Recovering/Resolving]
  - Paralysis [Recovering/Resolving]
  - Rectal haemorrhage [Unknown]
  - Ear haemorrhage [Unknown]
  - Mitral valve incompetence [Recovering/Resolving]
  - Cerebral small vessel ischaemic disease [Unknown]
  - Calculus bladder [Unknown]
  - Urinary tract infection [Unknown]
  - Renal cyst [Unknown]
  - Obesity [Unknown]
  - Vaginal prolapse [Unknown]
  - Rectal prolapse [Unknown]
  - Uterovaginal prolapse [Unknown]
  - Skin discolouration [Not Recovered/Not Resolved]
  - Atelectasis [Recovering/Resolving]
  - Pleural effusion [Recovering/Resolving]
  - Superficial vein thrombosis [Unknown]
  - Atrophic vulvovaginitis [Unknown]
  - Hyperlipidaemia [Unknown]
  - Cerebrovascular disorder [Unknown]
  - Alkalosis hypochloraemic [Recovering/Resolving]

NARRATIVE: CASE EVENT DATE: 20230701
